FAERS Safety Report 16058070 (Version 4)
Quarter: 2019Q2

REPORT INFORMATION
  Report Type: Spontaneous
  Country: US (occurrence: US)
  Receive Date: 20190311
  Receipt Date: 20190517
  Transmission Date: 20190711
  Serious: Yes (Life-Threatening, Hospitalization, Disabling)
  Sender: FDA-Public Use
  Company Number: US-AMREGENT-20190418

PATIENT
  Age: 82 Year
  Sex: Female
  Weight: 87.09 kg

DRUGS (26)
  1. INJECTAFER [Suspect]
     Active Substance: FERRIC CARBOXYMALTOSE
     Dosage: UNKNOWN
     Route: 042
     Dates: start: 20170815, end: 20170815
  2. ADCIRCA [Concomitant]
     Active Substance: TADALAFIL
     Dosage: 40 MG DAILY
     Route: 048
  3. MILK THISTLE [Concomitant]
     Active Substance: DIETARY SUPPLEMENT\HERBALS\MILK THISTLE
     Dosage: 240 MG DAILY
     Route: 048
  4. LEVOTHYROXINE. [Concomitant]
     Active Substance: LEVOTHYROXINE
     Dosage: 125 MCG DAILY
     Route: 048
  5. PULMICORT TURBUHALER [Concomitant]
     Active Substance: BUDESONIDE
     Dosage: 0.5 MG TWICE DAILY
     Route: 065
  6. GUAIFENESIN. [Concomitant]
     Active Substance: GUAIFENESIN
     Dosage: 600 MG TWICE DAILY
     Route: 065
     Dates: start: 2017
  7. INTRAVENOUS IMMUNOGLOBULIN [Concomitant]
     Active Substance: HUMAN IMMUNOGLOBULIN G
     Dosage: 25 G
     Route: 042
     Dates: start: 201708, end: 201708
  8. PREDNISONE. [Concomitant]
     Active Substance: PREDNISONE
     Dosage: PREDNISONE TAPER
     Route: 065
     Dates: start: 20170822
  9. FOLIC ACID. [Concomitant]
     Active Substance: FOLIC ACID
     Dosage: 1 MG DAILY
     Route: 065
  10. DUONEB [Concomitant]
     Active Substance: ALBUTEROL SULFATE\IPRATROPIUM BROMIDE
     Dosage: FOUR TIMES DAILY
     Route: 065
  11. FISH OIL [Concomitant]
     Active Substance: FISH OIL
     Dosage: 1200 MG DAILY
     Route: 048
  12. OVER-THE-COUNTER POTASSIUM [Concomitant]
     Dosage: 595 MG
     Route: 048
     Dates: start: 2017
  13. LASIX [Concomitant]
     Active Substance: FUROSEMIDE
     Dosage: 40 MG DAILY
     Route: 048
  14. OXYBUTYNIN. [Concomitant]
     Active Substance: OXYBUTYNIN CHLORIDE
     Dosage: 10 MG DAILY
     Route: 048
  15. VITAMIN D [Concomitant]
     Active Substance: VITAMIN D NOS
     Dosage: DAILY
     Route: 048
  16. PROTONIX [Concomitant]
     Active Substance: PANTOPRAZOLE SODIUM
     Dosage: 40 MG DAILY
     Route: 065
  17. SPIRONOLACTONE. [Concomitant]
     Active Substance: SPIRONOLACTONE
     Dosage: 25 MG DAILY
     Route: 048
  18. B-COMPLEX VITAMIN [Concomitant]
     Dosage: DAILY
     Route: 048
  19. OMNICEF [Concomitant]
     Active Substance: CEFDINIR
     Dosage: 300 MG TWICE DAILY
     Route: 065
     Dates: start: 201708, end: 201708
  20. TESSALON [Concomitant]
     Active Substance: BENZONATATE
     Dosage: 200 MG EVERY 8 HRS AS NEEDED
     Route: 065
     Dates: start: 2017
  21. COLACE [Concomitant]
     Active Substance: DOCUSATE SODIUM
     Dosage: 100 MG TWICE DAILY
     Route: 065
     Dates: start: 2017
  22. SINGULAIR [Concomitant]
     Active Substance: MONTELUKAST SODIUM
     Dosage: 10MG ONCE DAILY IN THE EVENING
     Route: 065
  23. CARDIZEM CD [Concomitant]
     Active Substance: DILTIAZEM HYDROCHLORIDE
     Dosage: 120 MG DAILY
     Route: 048
  24. CYTOMEL [Concomitant]
     Active Substance: LIOTHYRONINE SODIUM
     Dosage: 5 MG ONCE DAILY
     Route: 065
     Dates: start: 2017
  25. MIRALAX [Concomitant]
     Active Substance: POLYETHYLENE GLYCOL 3350
     Dosage: 17 G  DAILY
     Route: 065
     Dates: start: 2017
  26. COUMADIN [Concomitant]
     Active Substance: WARFARIN SODIUM
     Dosage: BASED ON INR
     Route: 048

REACTIONS (11)
  - Pain [Recovered/Resolved with Sequelae]
  - Oedema peripheral [Unknown]
  - Anxiety [Not Recovered/Not Resolved]
  - Anhedonia [Not Recovered/Not Resolved]
  - Alopecia [Unknown]
  - Spinal compression fracture [Unknown]
  - Product quality issue [Unknown]
  - Hypophosphataemia [Recovered/Resolved with Sequelae]
  - Emotional distress [Not Recovered/Not Resolved]
  - Nausea [Not Recovered/Not Resolved]
  - Impaired self-care [Not Recovered/Not Resolved]

NARRATIVE: CASE EVENT DATE: 2017
